FAERS Safety Report 8873527 (Version 2)
Quarter: 2013Q2

REPORT INFORMATION
  Report Type: Spontaneous
  Country: US (occurrence: US)
  Receive Date: 20121023
  Receipt Date: 20130422
  Transmission Date: 20140414
  Serious: No
  Sender: FDA-Public Use
  Company Number: US-ASTELLAS-2012US006533

PATIENT
  Age: 63 Year
  Sex: Male

DRUGS (1)
  1. LEXISCAN [Suspect]
     Indication: SCAN MYOCARDIAL PERFUSION
     Dosage: UNK
     Route: 040
     Dates: start: 20120726, end: 20120726

REACTIONS (4)
  - Injection site extravasation [Recovered/Resolved]
  - Oedema [Unknown]
  - Hypoaesthesia [Unknown]
  - Arthralgia [Unknown]
